FAERS Safety Report 5523083-4 (Version None)
Quarter: 2007Q4

REPORT INFORMATION
  Report Type: 
  Country: None (occurrence: None)
  Receive Date: 20071121
  Receipt Date: 20071113
  Transmission Date: 20080405
  Serious: Yes (Other)
  Sender: FDA-Public Use
  Company Number: PHBS2007GR17863

PATIENT
  Age: 55 Year
  Sex: Female

DRUGS (10)
  1. MYFORTIC [Suspect]
     Indication: LIVER TRANSPLANT
     Dosage: 1440 MG/D
     Route: 048
  2. CERTICAN [Suspect]
     Indication: LIVER TRANSPLANT
     Dosage: 1.5 MG, BID
     Route: 048
  3. MEDROL [Concomitant]
  4. FUNGOSTAL [Concomitant]
  5. AUGMENTIN [Concomitant]
  6. FLAGYL [Concomitant]
  7. VALSADE [Concomitant]
  8. SEPTRIN [Concomitant]
  9. ZURCAZOL [Concomitant]
  10. BACTRIMEL [Concomitant]

REACTIONS (3)
  - ABDOMINAL DISTENSION [None]
  - FLUID RETENTION [None]
  - ILEUS PARALYTIC [None]
